FAERS Safety Report 10228107 (Version 2)
Quarter: 2014Q2

REPORT INFORMATION
  Report Type: Report from Study
  Country: AR (occurrence: AR)
  Receive Date: 20140610
  Receipt Date: 20140612
  Transmission Date: 20141212
  Serious: Yes (Hospitalization, Other)
  Sender: FDA-Public Use
  Company Number: 2014SP001796

PATIENT
  Age: 24 Year
  Sex: Female
  Weight: 45 kg

DRUGS (2)
  1. ESLICARBAZEPINE ACETATE [Suspect]
     Indication: CONVULSION
     Route: 048
     Dates: start: 20140506
  2. ESLICARBAZEPINE ACETATE [Suspect]
     Indication: CONVULSION
     Route: 048
     Dates: start: 20140415, end: 20140506

REACTIONS (1)
  - Convulsion [Recovered/Resolved]
